FAERS Safety Report 20071673 (Version 2)
Quarter: 2022Q1

REPORT INFORMATION
  Report Type: Report from Study
  Country: US (occurrence: US)
  Receive Date: 20211116
  Receipt Date: 20220218
  Transmission Date: 20220423
  Serious: Yes (Hospitalization)
  Sender: FDA-Public Use
  Company Number: US-BIOVITRUM-2021US10623

PATIENT
  Age: 0 Year
  Sex: Female

DRUGS (8)
  1. SYNAGIS [Suspect]
     Active Substance: PALIVIZUMAB
     Indication: Truncus arteriosus persistent
     Dosage: 50MG/0.5 ML / 100MG/1ML
     Route: 030
     Dates: start: 20211005
  2. FAMOTIDINE [Concomitant]
     Active Substance: FAMOTIDINE
  3. VITAMIN D [Concomitant]
     Active Substance: VITAMIN D NOS
  4. ASPIRIN CHW [Concomitant]
  5. VITAMIN D3 [Concomitant]
     Active Substance: CHOLECALCIFEROL
  6. CALCIUM CARBONATE [Concomitant]
     Active Substance: CALCIUM CARBONATE
  7. D-VI-SOL [Concomitant]
  8. ACETAMINOPHEN [Concomitant]
     Active Substance: ACETAMINOPHEN

REACTIONS (1)
  - Respiratory syncytial virus infection [Not Recovered/Not Resolved]

NARRATIVE: CASE EVENT DATE: 20210929
